FAERS Safety Report 8395497-9 (Version None)
Quarter: 2012Q2

REPORT INFORMATION
  Report Type: 
  Country: None (occurrence: None)
  Receive Date: 20120530
  Receipt Date: 20110511
  Transmission Date: 20120825
  Serious: Yes (Hospitalization)
  Sender: FDA-Public Use
  Company Number: US-GLAXOSMITHKLINE-A0926985A

PATIENT
  Age: 49 Year
  Sex: Male

DRUGS (11)
  1. VENTOLIN [Suspect]
     Indication: CHRONIC OBSTRUCTIVE PULMONARY DISEASE
     Route: 055
  2. FUROSEMIDE [Concomitant]
  3. AMOXICILLIN [Concomitant]
  4. NAPROXEN [Concomitant]
  5. HYDROCORTISONE [Concomitant]
  6. OXYPAN [Concomitant]
  7. CARVEDILOL [Concomitant]
  8. GEMFIBROZIL [Concomitant]
  9. PREDNISONE TAB [Concomitant]
  10. METHOCARBAMOL [Concomitant]
  11. BROMPHENIRAMINE MALEATE + PSEUDOEPHEDRINE HCL [Concomitant]

REACTIONS (1)
  - DRUG INEFFECTIVE [None]
